FAERS Safety Report 14710488 (Version 1)
Quarter: 2018Q2

REPORT INFORMATION
  Report Type: Spontaneous
  Country: US (occurrence: US)
  Receive Date: 20180403
  Receipt Date: 20180403
  Transmission Date: 20180711
  Serious: No
  Sender: FDA-Public Use
  Company Number: US-ROCHE-2020553

PATIENT
  Sex: Female

DRUGS (1)
  1. ERIVEDGE [Suspect]
     Active Substance: VISMODEGIB
     Indication: ROSACEA
     Route: 048

REACTIONS (3)
  - Muscle spasms [Recovered/Resolved]
  - Intentional product use issue [Unknown]
  - Off label use [Unknown]
